FAERS Safety Report 5170403-9 (Version None)
Quarter: 2006Q4

REPORT INFORMATION
  Report Type: 
  Country: None (occurrence: None)
  Receive Date: 20061212
  Receipt Date: 20061201
  Transmission Date: 20070319
  Serious: Yes (Other)
  Sender: FDA-Public Use
  Company Number: JP-SANOFI-SYNTHELABO-A01200610613

PATIENT
  Age: 69 Year

DRUGS (3)
  1. OXALIPLATIN [Suspect]
     Route: 042
     Dates: start: 20061018, end: 20061018
  2. FLUOROURACIL [Concomitant]
     Dosage: 600 MG/BODY IN BOLUS THEN 3750 MG/BODY AS INFUSION
     Route: 042
     Dates: start: 20061018, end: 20061018
  3. LEVOFOLINTE CALCIUM [Concomitant]
     Dosage: 303MG/BODY
     Route: 041
     Dates: start: 20061018, end: 20061018

REACTIONS (1)
  - ANGINA PECTORIS [None]
